FAERS Safety Report 10607158 (Version 1)
Quarter: 2014Q4

REPORT INFORMATION
  Report Type: Spontaneous
  Country: US (occurrence: None)
  Receive Date: 20141124
  Receipt Date: 20141124
  Transmission Date: 20150529
  Serious: Yes (Other)
  Sender: FDA-Public Use
  Company Number: None

PATIENT
  Age: 50 Year
  Sex: Male
  Weight: 69 kg

DRUGS (7)
  1. PIPERACILLIN AND TAZOBACTUM [Concomitant]
  2. FLUCONAZOLE. [Concomitant]
     Active Substance: FLUCONAZOLE
  3. COLISTIMETHATE SODIUM. [Concomitant]
     Active Substance: COLISTIMETHATE SODIUM
  4. LACTULOSE. [Concomitant]
     Active Substance: LACTULOSE
  5. INJ HYDROCORTISONE [Concomitant]
  6. FUROSEMIDE. [Suspect]
     Active Substance: FUROSEMIDE
     Indication: RENAL DISORDER
     Dosage: 1
     Route: 042
  7. INJ PANTOPRAZOLE [Concomitant]

REACTIONS (1)
  - Hypokalaemia [None]

NARRATIVE: CASE EVENT DATE: 20141120
